FAERS Safety Report 16925413 (Version 3)
Quarter: 2019Q4

REPORT INFORMATION
  Report Type: Spontaneous
  Country: JP (occurrence: JP)
  Receive Date: 20191016
  Receipt Date: 20191213
  Transmission Date: 20200122
  Serious: Yes (Life-Threatening, Other)
  Sender: FDA-Public Use
  Company Number: JP-GLAXOSMITHKLINE-JP2019JPN185990

PATIENT
  Sex: Male
  Weight: 72 kg

DRUGS (63)
  1. KAKKONTO [Concomitant]
     Active Substance: HERBALS
     Dosage: UNK
     Dates: start: 20141129, end: 20150305
  2. ACTOS [Concomitant]
     Active Substance: PIOGLITAZONE HYDROCHLORIDE
     Dosage: UNK
     Dates: start: 20100203, end: 20110829
  3. TAKEPRON OD TABLET (LANSOPRAZOLE) [Concomitant]
     Dosage: UNK
     Dates: start: 20130518, end: 20130524
  4. EPADEL S [Concomitant]
     Active Substance: ICOSAPENT ETHYL
     Dosage: UNK
     Dates: start: 20081112, end: 20110829
  5. BEZATOL SR TABLET [Concomitant]
     Dosage: UNK
     Dates: start: 20090512, end: 20120706
  6. MAGNESIUM OXIDE TABLET [Concomitant]
     Dosage: UNK
     Dates: start: 20170707, end: 20191126
  7. HUSCODE [Concomitant]
     Active Substance: CHLORPHENIRAMINE MALEATE\DIHYDROCODEINE PHOSPHATE\METHYLEPHEDRINE HYDROCHLORIDE, DL-
     Dosage: UNK
     Dates: start: 20170414, end: 20170420
  8. TOUGHMAC E [Concomitant]
     Active Substance: AMYLASE\LIPASE\PROTEASE
     Dosage: UNK
     Dates: start: 20181018, end: 20191126
  9. SANCOBA OPHTHALMIC SOLUTION [Concomitant]
     Dosage: UNK
     Dates: start: 20150520
  10. LOXOPROFEN NA TAPE [Concomitant]
     Dosage: UNK
     Dates: start: 20191015
  11. RESPLEN TABLETS [Concomitant]
     Dosage: UNK
     Dates: start: 20091222, end: 20171105
  12. ADALAT-CR TABLET [Concomitant]
     Dosage: UNK
     Dates: start: 20151117, end: 20151130
  13. RIZE (JAPAN) [Concomitant]
     Dosage: UNK
     Dates: start: 20110209, end: 20110411
  14. LENDORMIN D TABLET [Concomitant]
     Dosage: UNK
     Dates: start: 20140602, end: 20140629
  15. NELBIS [Concomitant]
     Active Substance: METFORMIN HYDROCHLORIDE
     Dosage: UNK
     Dates: start: 20091130, end: 20100110
  16. CLARITHROMYCIN TABLETS [Concomitant]
     Active Substance: CLARITHROMYCIN
     Dosage: UNK
     Dates: start: 20130919, end: 20130928
  17. SACCORTIN [Concomitant]
     Dosage: UNK
     Dates: start: 20130311
  18. BELSOMRA [Concomitant]
     Active Substance: SUVOREXANT
     Dosage: UNK
     Dates: start: 20151104, end: 20191116
  19. MIYA-BM [Concomitant]
     Active Substance: CLOSTRIDIUM BUTYRICUM SPORES STRAIN M-55
     Dosage: UNK
     Dates: start: 20110209, end: 20120105
  20. ZETIA TABLETS [Concomitant]
     Dosage: UNK
     Dates: start: 20090624, end: 20191126
  21. TALION OD TABLETS [Concomitant]
     Dosage: UNK
     Dates: start: 20170414
  22. BROTIZOLAM OD TABLETS [Concomitant]
     Dosage: UNK
     Dates: start: 20140726, end: 20191116
  23. FAMOTIDINE OD TABLETS [Concomitant]
     Dosage: UNK
     Dates: start: 20191015, end: 20191126
  24. MECOBALAMIN TABLETS [Concomitant]
     Active Substance: METHYLCOBALAMIN
     Dosage: UNK
     Dates: start: 20141028, end: 20141226
  25. NORVASC OD TABLETS [Concomitant]
     Dosage: UNK
     Dates: start: 20090807, end: 20130602
  26. TRICOR [Concomitant]
     Active Substance: FENOFIBRATE
     Dosage: UNK
     Dates: start: 20121102, end: 20191126
  27. ZANTAC [Suspect]
     Active Substance: RANITIDINE HYDROCHLORIDE
     Dosage: 75 MG, UNK
     Route: 048
     Dates: start: 20091019, end: 20191011
  28. LIPITOR TABLETS [Concomitant]
     Dosage: UNK
     Dates: start: 20081112, end: 20090511
  29. GASLON N-OD TABLETS [Concomitant]
     Dosage: UNK
     Dates: start: 20081112, end: 20091006
  30. TALION OD TABLETS [Concomitant]
     Dosage: UNK
     Dates: start: 20090216, end: 20170427
  31. LIXIANA OD TABLETS [Concomitant]
     Active Substance: EDOXABAN TOSYLATE
     Dosage: UNK
     Dates: start: 20191015, end: 20191113
  32. NAPAGELN LOTION [Concomitant]
     Dosage: UNK
     Dates: start: 20130518
  33. GASCON TABLET (DIMETHICONE) [Concomitant]
     Dosage: UNK
     Dates: start: 20110209, end: 20191126
  34. AMARYL TABLETS [Concomitant]
     Dosage: UNK
     Dates: start: 20100316, end: 20140206
  35. CRESTOR [Concomitant]
     Active Substance: ROSUVASTATIN CALCIUM
     Dosage: UNK
     Dates: start: 20120707, end: 20121030
  36. TRANEXAMIC ACID TABLETS [Concomitant]
     Active Substance: TRANEXAMIC ACID
     Dosage: UNK
     Dates: start: 20100428, end: 20171105
  37. EMPYNASE P [Concomitant]
     Active Substance: PROTEASE
     Dosage: UNK
     Dates: start: 20141129, end: 20151206
  38. NESINA TABLETS [Concomitant]
     Dosage: UNK
     Dates: start: 20110830, end: 20180923
  39. SP TROCHES [Concomitant]
     Active Substance: DEQUALINIUM CHLORIDE
     Dosage: UNK
     Dates: start: 20091222
  40. AZUNOL GARGLE LIQUID [Concomitant]
     Dosage: UNK
     Dates: start: 20091222
  41. LIVOSTIN NASAL SOLUTION (LEVOCABASTINE HYDROCHLORIDE) [Concomitant]
     Dosage: UNK
     Dates: start: 20090216
  42. HALCION [Concomitant]
     Active Substance: TRIAZOLAM
     Dosage: UNK
     Dates: start: 20081112, end: 20140510
  43. ONON CAPSULES [Concomitant]
     Dosage: UNK
     Dates: start: 20110311, end: 20110411
  44. AMLODIN OD TABLETS [Concomitant]
     Dosage: UNK
     Dates: start: 20081112, end: 20090804
  45. LOXOPROFEN NA TABLETS [Concomitant]
     Dosage: UNK
     Dates: start: 20130919, end: 20130928
  46. PRANLUKAST CAPSULE [Concomitant]
     Dosage: UNK
     Dates: start: 20100118, end: 20100131
  47. ETHYL ICOSAPENTATE [Concomitant]
     Active Substance: ICOSAPENT ETHYL
     Dosage: UNK
     Dates: start: 20100816, end: 20180913
  48. SPIROPENT [Concomitant]
     Active Substance: CLENBUTEROL HYDROCHLORIDE
     Dosage: UNK
     Dates: start: 20110311, end: 20110411
  49. NAUZELIN OD TABLETS [Concomitant]
     Dosage: UNK
     Dates: start: 20130518, end: 20130524
  50. LIVOSTIN OPHTHALMIC SOLUTION (LEVOCABASTINE HYDROCHLORIDE) [Concomitant]
     Dosage: UNK
     Dates: start: 20090216
  51. ALLERMIST NASAL SPRAY [Concomitant]
     Dosage: UNK
     Dates: start: 20130311
  52. ZANTAC [Suspect]
     Active Substance: RANITIDINE HYDROCHLORIDE
     Indication: CHRONIC GASTRITIS
     Dosage: 150 MG, BID
     Route: 048
     Dates: end: 20091006
  53. CELESTAMINE [Concomitant]
     Active Substance: BETAMETHASONE\DEXCHLORPHENIRAMINE MALEATE
     Dosage: UNK
     Dates: start: 20090216, end: 20100120
  54. IPD CAPSULE [Concomitant]
     Dosage: UNK
     Dates: start: 20170414, end: 20170420
  55. KLARICID TABLETS [Concomitant]
     Active Substance: CLARITHROMYCIN
     Dosage: UNK
     Dates: start: 20091222, end: 20100124
  56. CRAVIT TABLETS [Concomitant]
     Dosage: UNK
     Dates: start: 20100428, end: 20100504
  57. MUCODYNE TABLETS [Concomitant]
     Dosage: UNK
     Dates: start: 20091222, end: 20110425
  58. CALONAL TABLET [Concomitant]
     Dosage: UNK
     Dates: start: 20141129
  59. AMOXICILLIN. [Concomitant]
     Active Substance: AMOXICILLIN
     Dosage: UNK
     Dates: start: 20141129, end: 20141203
  60. LEVOFLOXACIN TABLETS [Concomitant]
     Active Substance: LEVOFLOXACIN
     Dosage: UNK
     Dates: start: 20110329, end: 20170420
  61. GLIMEPIRIDE. [Concomitant]
     Active Substance: GLIMEPIRIDE
     Dosage: UNK
     Dates: start: 20140218, end: 20180923
  62. ADOAIR 500 DISKUS [Concomitant]
     Dosage: UNK
     Dates: start: 20100122
  63. FLUMETHOLON OPHTHALMIC SUSPENSION [Concomitant]
     Dosage: UNK
     Dates: start: 20130311

REACTIONS (3)
  - Lymphoma [Unknown]
  - Metastases to lymph nodes [Not Recovered/Not Resolved]
  - Tongue neoplasm malignant stage unspecified [Not Recovered/Not Resolved]

NARRATIVE: CASE EVENT DATE: 2008
